FAERS Safety Report 10622021 (Version 1)
Quarter: 2014Q4

REPORT INFORMATION
  Report Type: Spontaneous
  Country: US (occurrence: None)
  Receive Date: 20141201
  Receipt Date: 20141201
  Transmission Date: 20150529
  Serious: Yes (Disabling)
  Sender: FDA-Public Use
  Company Number: None

PATIENT
  Age: 43 Year
  Sex: Female
  Weight: 97.98 kg

DRUGS (8)
  1. PREGABALIN. [Suspect]
     Active Substance: PREGABALIN
     Indication: FIBROMYALGIA
     Dosage: 1 BID ORAL
     Route: 048
     Dates: start: 20120925, end: 20120927
  2. CARNITINE [Concomitant]
     Active Substance: CARNITINE
  3. PRAVASTATIN [Concomitant]
     Active Substance: PRAVASTATIN\PRAVASTATIN SODIUM
  4. TRAZODONE [Concomitant]
     Active Substance: TRAZODONE HYDROCHLORIDE
  5. KYOLIC GARLIC [Concomitant]
  6. FLAXSEED [Concomitant]
     Active Substance: FLAX SEED
  7. CO ENZYME Q10 [Concomitant]
  8. VITAMIN D [Concomitant]
     Active Substance: CHOLECALCIFEROL

REACTIONS (5)
  - Head titubation [None]
  - Fatigue [None]
  - Musculoskeletal stiffness [None]
  - Fall [None]
  - Tremor [None]

NARRATIVE: CASE EVENT DATE: 20121028
